FAERS Safety Report 7732911-3 (Version None)
Quarter: 2011Q3

REPORT INFORMATION
  Report Type: 
  Country: None (occurrence: None)
  Receive Date: 20110907
  Receipt Date: 20110824
  Transmission Date: 20111222
  Serious: Yes (Other)
  Sender: FDA-Public Use
  Company Number: PHHY2011AU76832

PATIENT
  Age: 37 Year
  Sex: Female

DRUGS (4)
  1. KETOCONAZOLE [Suspect]
     Indication: CORTISOL FREE URINE INCREASED
     Dosage: 200 MG BD
  2. KETOCONAZOLE [Suspect]
     Dosage: 400 MG BD
     Dates: start: 20091101
  3. METYRAPONE [Suspect]
     Indication: CORTISOL FREE URINE INCREASED
     Dosage: UNK
     Dates: start: 20091101
  4. KETOCONAZOLE [Suspect]
     Dosage: UNK

REACTIONS (5)
  - ANXIETY [None]
  - CORTISOL FREE URINE INCREASED [None]
  - DEPRESSION [None]
  - ACTIVITIES OF DAILY LIVING IMPAIRED [None]
  - ASTHENIA [None]
